FAERS Safety Report 4804197-0 (Version None)
Quarter: 2005Q4

REPORT INFORMATION
  Report Type: 
  Country: None (occurrence: None)
  Receive Date: 20051018
  Receipt Date: 20051018
  Transmission Date: 20060501
  Serious: No
  Sender: FDA-Public Use
  Company Number: None

PATIENT

DRUGS (1)
  1. HYDROCODONE/APAP 7.5/750 [Suspect]

REACTIONS (2)
  - DRUG INEFFECTIVE [None]
  - HOT FLUSH [None]
